FAERS Safety Report 6045549-3 (Version None)
Quarter: 2009Q1

REPORT INFORMATION
  Report Type: 
  Country: None (occurrence: None)
  Receive Date: 20090121
  Receipt Date: 20090120
  Transmission Date: 20090719
  Serious: Yes (Other)
  Sender: FDA-Public Use
  Company Number: B0554895A

PATIENT
  Age: 65 Year
  Sex: Male

DRUGS (6)
  1. ABACAVIR SULFATE [Suspect]
     Indication: HIV INFECTION
     Dosage: 600U UNKNOWN
     Route: 065
  2. ZIDOVUDINE [Suspect]
     Indication: HIV INFECTION
     Dosage: 500MG UNKNOWN
     Route: 065
  3. FOSAMPRENAVIR [Concomitant]
  4. RITONAVIR [Concomitant]
  5. TENOFOVIR [Concomitant]
  6. RALTEGRAVIR [Concomitant]

REACTIONS (1)
  - MYOCARDIAL ISCHAEMIA [None]
